FAERS Safety Report 20728198 (Version 2)
Quarter: 2022Q2

REPORT INFORMATION
  Report Type: Spontaneous
  Country: US (occurrence: US)
  Receive Date: 20220420
  Receipt Date: 20220512
  Transmission Date: 20220721
  Serious: No
  Sender: FDA-Public Use
  Company Number: US-ELI_LILLY_AND_COMPANY-US202204007946

PATIENT
  Age: 33 Year
  Sex: Male

DRUGS (3)
  1. ZYPREXA RELPREVV [Suspect]
     Active Substance: OLANZAPINE PAMOATE
     Indication: Product used for unknown indication
     Dosage: 300 MG, 2/M
     Route: 030
     Dates: start: 20220408
  2. ZYPREXA RELPREVV [Suspect]
     Active Substance: OLANZAPINE PAMOATE
     Indication: Product used for unknown indication
     Dosage: 300 MG, 2/M
     Route: 030
     Dates: start: 20220408
  3. ZYPREXA RELPREVV [Suspect]
     Active Substance: OLANZAPINE PAMOATE
     Indication: Product used for unknown indication
     Dosage: 300 MG, 2/M
     Route: 030
     Dates: start: 20220408

REACTIONS (3)
  - Poor quality sleep [Unknown]
  - Sleep disorder [Unknown]
  - Somnolence [Unknown]

NARRATIVE: CASE EVENT DATE: 20220408
